FAERS Safety Report 4810519-7 (Version None)
Quarter: 2005Q4

REPORT INFORMATION
  Report Type: 
  Country: None (occurrence: None)
  Receive Date: 20051025
  Receipt Date: 20051025
  Transmission Date: 20060501
  Serious: No
  Sender: FDA-Public Use
  Company Number: None

PATIENT
  Age: 61 Year
  Sex: Female

DRUGS (3)
  1. FEXOFENADINE HCL [Suspect]
     Indication: MULTIPLE ALLERGIES
     Dosage: ONE TWICE DAILY
  2. NASONEX [Concomitant]
  3. MIACALCIN [Concomitant]

REACTIONS (2)
  - CONDITION AGGRAVATED [None]
  - THERAPEUTIC RESPONSE UNEXPECTED WITH DRUG SUBSTITUTION [None]
